FAERS Safety Report 10897933 (Version 1)
Quarter: 2015Q1

REPORT INFORMATION
  Report Type: Spontaneous
  Country: US (occurrence: US)
  Receive Date: 20150309
  Receipt Date: 20150309
  Transmission Date: 20150721
  Serious: Yes (Hospitalization)
  Sender: FDA-Public Use
  Company Number: PHHY2015US022922

PATIENT
  Age: 31 Year
  Sex: Female

DRUGS (1)
  1. THIAMAZOLE [Suspect]
     Active Substance: METHIMAZOLE
     Indication: HYPERTHYROIDISM
     Dosage: 30 MG, QD
     Route: 065

REACTIONS (8)
  - Jaundice [Unknown]
  - Tremor [Unknown]
  - Ocular icterus [Unknown]
  - Hyperreflexia [Unknown]
  - Pyrexia [Unknown]
  - Hepatotoxicity [Unknown]
  - Agranulocytosis [Unknown]
  - Dysphagia [Unknown]
